FAERS Safety Report 8773842 (Version 3)
Quarter: 2012Q4

REPORT INFORMATION
  Report Type: 
  Country: US (occurrence: US)
  Receive Date: 20120907
  Receipt Date: 20121101
  Transmission Date: 20130627
  Serious: Yes (Disabling)
  Sender: FDA-Public Use
  Company Number: US-CELGENEUS-163-21880-12082440

PATIENT
  Age: 70 Year
  Sex: Female
  Weight: 58.11 kg

DRUGS (10)
  1. REVLIMID [Suspect]
     Indication: NON-HODGKIN^S LYMPHOMA
     Dosage: 10 Milligram
     Route: 048
     Dates: start: 20120813, end: 20120821
  2. REVLIMID [Suspect]
     Dosage: 2.5 Milligram
     Route: 048
     Dates: start: 201210
  3. VALACYCLOVIR [Concomitant]
     Indication: PROPHYLAXIS
     Dosage: 1 Gram
     Route: 048
     Dates: start: 20120203, end: 20120204
  4. BACTRIM DS [Concomitant]
     Indication: PROPHYLAXIS
     Dosage: 800-160mg
     Route: 048
     Dates: start: 20120203, end: 20120204
  5. PREDNISONE [Concomitant]
     Indication: ANTIINFLAMMATORY THERAPY
     Dosage: 10 Milligram
     Route: 065
     Dates: start: 20080303
  6. PREDNISONE [Concomitant]
     Dosage: 10 Milligram
     Route: 065
     Dates: start: 20110104, end: 20110105
  7. RITUXAN [Concomitant]
     Indication: DRUG USE FOR UNKNOWN INDICATION
     Route: 065
     Dates: start: 20120305
  8. RITUXAN [Concomitant]
     Route: 065
     Dates: start: 20120813
  9. NEULASTA [Concomitant]
     Indication: PROPHYLAXIS
     Dosage: 6mg/0.6mL
     Route: 058
  10. BENDAMUSTINE [Concomitant]
     Indication: DRUG USE FOR UNKNOWN INDICATION
     Route: 065
     Dates: start: 20120305, end: 20120813

REACTIONS (8)
  - Skin lesion [Recovering/Resolving]
  - Skin mass [Recovering/Resolving]
  - Muscle tightness [Recovering/Resolving]
  - Rash [Recovering/Resolving]
  - Abdominal pain [Recovering/Resolving]
  - Myalgia [Recovering/Resolving]
  - Stomatitis [Recovering/Resolving]
  - Oedema peripheral [Recovering/Resolving]
